FAERS Safety Report 25433760 (Version 2)
Quarter: 2025Q2

REPORT INFORMATION
  Report Type: Spontaneous
  Country: US (occurrence: US)
  Receive Date: 20250613
  Receipt Date: 20250625
  Transmission Date: 20250716
  Serious: No
  Sender: Haleon PLC
  Company Number: US-HALEON-2246238

PATIENT
  Age: 74 Year
  Sex: Female
  Weight: 63.503 kg

DRUGS (1)
  1. ADVIL [Suspect]
     Active Substance: IBUPROFEN
     Indication: Inflammation
     Dates: start: 20250526, end: 20250528

REACTIONS (2)
  - Gastrointestinal disorder [Recovered/Resolved]
  - Product use in unapproved indication [Unknown]

NARRATIVE: CASE EVENT DATE: 20250526
